FAERS Safety Report 7012629-5 (Version None)
Quarter: 2010Q3

REPORT INFORMATION
  Report Type: 
  Country: None (occurrence: None)
  Receive Date: 20100924
  Receipt Date: 20100913
  Transmission Date: 20110219
  Serious: Yes (Hospitalization)
  Sender: FDA-Public Use
  Company Number: CHPA2009JP21726

PATIENT
  Sex: Female
  Weight: 54.512 kg

DRUGS (10)
  1. GLYSENNID [Suspect]
     Dosage: UNK, UNK
     Route: 048
     Dates: start: 20040101
  2. SORAFENIB [Suspect]
     Indication: HEPATIC NEOPLASM MALIGNANT
     Dosage: 400 MG, BID
     Route: 048
     Dates: start: 20090909, end: 20090910
  3. SORAFENIB [Suspect]
     Dosage: 400 MG, QOD
     Route: 048
     Dates: start: 20091012
  4. GLYCYOL [Concomitant]
     Dosage: UNK
  5. SAWADOL L [Concomitant]
     Dosage: UNK
  6. D ALFA [Concomitant]
     Dosage: UNK
  7. NIFELAT L [Concomitant]
     Dosage: UNK
  8. RETICOLAN [Concomitant]
     Dosage: UNK
  9. ASPARA-CA [Concomitant]
     Dosage: UNK
  10. URSO 250 [Concomitant]
     Dosage: UNK

REACTIONS (8)
  - ABDOMINAL PAIN [None]
  - ABDOMINAL TENDERNESS [None]
  - BLOOD AMYLASE INCREASED [None]
  - BODY TEMPERATURE DECREASED [None]
  - C-REACTIVE PROTEIN DECREASED [None]
  - DIARRHOEA [None]
  - LIPASE INCREASED [None]
  - PANCREATIC ENZYMES INCREASED [None]
